FAERS Safety Report 25585559 (Version 1)
Quarter: 2025Q3

REPORT INFORMATION
  Report Type: Spontaneous
  Country: US (occurrence: None)
  Receive Date: 20250718
  Receipt Date: 20250718
  Transmission Date: 20251021
  Serious: Yes (Other)
  Sender: FDA-CTU
  Company Number: None

PATIENT
  Age: 27 Year
  Sex: Female
  Weight: 57 kg

DRUGS (6)
  1. VALPROATE [Suspect]
     Active Substance: VALPROIC ACID
     Indication: Agitation
     Route: 042
     Dates: start: 20250718, end: 20250718
  2. VALPROATE [Suspect]
     Active Substance: VALPROIC ACID
     Indication: Delirium
  3. INSULIN NOS [Concomitant]
     Active Substance: INSULIN NOS
     Dates: start: 20250716, end: 20250717
  4. CEFTRIAXONE [Concomitant]
     Active Substance: CEFTRIAXONE
     Dates: start: 20250716, end: 20250718
  5. HALOPERIDOL [Concomitant]
     Active Substance: HALOPERIDOL
     Dates: start: 20250718, end: 20250718
  6. ENOXAPARIN [Concomitant]
     Active Substance: ENOXAPARIN
     Dates: start: 20250718, end: 20250718

REACTIONS (1)
  - Periorbital oedema [None]

NARRATIVE: CASE EVENT DATE: 20250718
